FAERS Safety Report 19031167 (Version 1)
Quarter: 2021Q1

REPORT INFORMATION
  Report Type: Report from Study
  Country: FR (occurrence: FR)
  Receive Date: 20210319
  Receipt Date: 20210319
  Transmission Date: 20210420
  Serious: Yes (Hospitalization)
  Sender: FDA-Public Use
  Company Number: FR-ROCHE-2787995

PATIENT
  Age: 85 Year
  Sex: Female
  Weight: 58 kg

DRUGS (3)
  1. CORTANCYL [Suspect]
     Active Substance: PREDNISONE
     Indication: GIANT CELL ARTERITIS
     Route: 065
  2. TOCILIZUMAB. [Suspect]
     Active Substance: TOCILIZUMAB
     Indication: GIANT CELL ARTERITIS
     Route: 042
  3. SOLU?MEDROL [Suspect]
     Active Substance: METHYLPREDNISOLONE SODIUM SUCCINATE
     Indication: GIANT CELL ARTERITIS
     Route: 065
     Dates: start: 20200918

REACTIONS (6)
  - Diabetes with hyperosmolarity [Unknown]
  - Diabetic metabolic decompensation [Unknown]
  - Cystitis [Unknown]
  - Myocardial infarction [Unknown]
  - Acute coronary syndrome [Unknown]
  - Herpes zoster [Unknown]

NARRATIVE: CASE EVENT DATE: 20201018
